FAERS Safety Report 5580646-8 (Version None)
Quarter: 2008Q1

REPORT INFORMATION
  Report Type: 
  Country: None (occurrence: None)
  Receive Date: 20080103
  Receipt Date: 20071224
  Transmission Date: 20080703
  Serious: Yes (Other)
  Sender: FDA-Public Use
  Company Number: US-PFIZER INC-2007061339

PATIENT
  Sex: Male

DRUGS (7)
  1. LYRICA [Suspect]
     Indication: PAIN IN EXTREMITY
     Dosage: DAILY DOSE:125MG
  2. LYRICA [Suspect]
     Indication: NEURALGIA
  3. CRESTOR [Concomitant]
  4. ROBAXIN [Concomitant]
  5. ALPRAZOLAM [Concomitant]
  6. PROSCAR [Concomitant]
  7. FLOMAX [Concomitant]

REACTIONS (2)
  - DIPLOPIA [None]
  - WEIGHT DECREASED [None]
